FAERS Safety Report 21940579 (Version 1)
Quarter: 2023Q1

REPORT INFORMATION
  Report Type: Report from Study
  Country: US (occurrence: US)
  Receive Date: 20230201
  Receipt Date: 20230201
  Transmission Date: 20230417
  Serious: No
  Sender: FDA-Public Use
  Company Number: US-EXELIXIS-CABO-22051363

PATIENT
  Sex: Male

DRUGS (2)
  1. CABOMETYX [Suspect]
     Active Substance: CABOZANTINIB S-MALATE
     Indication: Renal cancer
     Dosage: 40 MG, QD
     Route: 048
     Dates: start: 20210727
  2. EVEROLIMUS [Concomitant]
     Active Substance: EVEROLIMUS

REACTIONS (5)
  - Oral pain [Unknown]
  - Pain in extremity [Unknown]
  - Cough [Unknown]
  - Stomatitis [Recovering/Resolving]
  - Vomiting [Unknown]
